FAERS Safety Report 8771271 (Version 2)
Quarter: 2012Q4

REPORT INFORMATION
  Report Type: Report from Study
  Country: JP (occurrence: JP)
  Receive Date: 20120906
  Receipt Date: 20121205
  Transmission Date: 20130627
  Serious: Yes (Life-Threatening, Hospitalization, Other)
  Sender: FDA-Public Use
  Company Number: JP-CELGENEUS-087-50794-12090285

PATIENT
  Age: 89 Year
  Sex: Male
  Weight: 58 kg

DRUGS (13)
  1. VIDAZA [Suspect]
     Indication: MDS
     Dosage: 75 milligram/sq. meter
     Route: 058
     Dates: start: 20120223, end: 20120229
  2. VIDAZA [Suspect]
     Dosage: 37.5 milligram/sq. meter
     Route: 058
     Dates: start: 20120405, end: 20120411
  3. VIDAZA [Suspect]
     Dosage: 37.5 milligram/sq. meter
     Route: 058
     Dates: start: 20120503, end: 20120509
  4. VIDAZA [Suspect]
     Dosage: 37.5 milligram/sq. meter
     Route: 058
     Dates: start: 20120531, end: 20120606
  5. VIDAZA [Suspect]
     Dosage: 37.5 milligram/sq. meter
     Route: 058
     Dates: start: 20120703, end: 20120709
  6. VIDAZA [Suspect]
     Dosage: 37.5 milligram/sq. meter
     Route: 058
     Dates: start: 20120731, end: 20120806
  7. ITRIZOLE [Concomitant]
     Indication: DRUG USE FOR UNKNOWN INDICATION
     Route: 065
     Dates: start: 20120223
  8. BAKTAR [Concomitant]
     Indication: DRUG USE FOR UNKNOWN INDICATION
     Route: 065
     Dates: start: 20120223
  9. SERMION [Concomitant]
     Indication: DRUG USE FOR UNKNOWN INDICATION
     Route: 065
  10. URITOS [Concomitant]
     Indication: DRUG USE FOR UNKNOWN INDICATION
     Route: 065
  11. MERISLON [Concomitant]
     Indication: DRUG USE FOR UNKNOWN INDICATION
     Route: 065
  12. DAIOKANZOTO [Concomitant]
     Indication: DRUG USE FOR UNKNOWN INDICATION
     Route: 065
  13. LUPRAC [Concomitant]
     Indication: DRUG USE FOR UNKNOWN INDICATION
     Route: 065
     Dates: start: 20120411

REACTIONS (3)
  - Platelet count decreased [Not Recovered/Not Resolved]
  - Anaemia [Not Recovered/Not Resolved]
  - Pneumonia [Recovering/Resolving]
